FAERS Safety Report 9447967 (Version 2)
Quarter: 2013Q3

REPORT INFORMATION
  Report Type: Spontaneous
  Country: JP (occurrence: JP)
  Receive Date: 20130808
  Receipt Date: 20130823
  Transmission Date: 20140515
  Serious: Yes (Death, Other)
  Sender: FDA-Public Use
  Company Number: PHHY2013JP084994

PATIENT
  Age: 49 Year
  Sex: Female

DRUGS (4)
  1. ZOLEDRONATE [Suspect]
     Indication: METASTASES TO BONE
     Dosage: UNK UKN, UNK
     Route: 041
  2. PAMIDRONATE DISODIUM [Suspect]
     Indication: METASTASES TO BONE
     Dosage: UNK UKN, UNK
     Route: 041
  3. CAPECITABINE [Concomitant]
     Dosage: UNK UKN, UNK
     Dates: start: 200907
  4. ANASTROZOLE [Concomitant]
     Dosage: UNK UKN, UNK
     Dates: start: 200907

REACTIONS (5)
  - Multi-organ failure [Fatal]
  - Neoplasm recurrence [Unknown]
  - Benign lymph node neoplasm [Unknown]
  - Osteonecrosis of jaw [Unknown]
  - Metastases to liver [Unknown]
